FAERS Safety Report 6596352-7 (Version None)
Quarter: 2010Q1

REPORT INFORMATION
  Report Type: 
  Country: None (occurrence: None)
  Receive Date: 20100223
  Receipt Date: 20100211
  Transmission Date: 20100710
  Serious: Yes (Hospitalization, Other)
  Sender: FDA-Public Use
  Company Number: US-ELI_LILLY_AND_COMPANY-US201002003646

PATIENT
  Sex: Female
  Weight: 83.447 kg

DRUGS (15)
  1. BYETTA [Suspect]
     Indication: TYPE 2 DIABETES MELLITUS
     Dosage: 5 UG, 2/D
     Dates: start: 20080101, end: 20080101
  2. BYETTA [Suspect]
     Dosage: 10 UG, 2/D
     Route: 058
     Dates: start: 20080101
  3. SYNTHROID [Concomitant]
     Dosage: 50 UG, UNK
  4. METFORMIN HCL [Concomitant]
     Indication: TYPE 2 DIABETES MELLITUS
     Dosage: 500 MG, 2/D
  5. DIAZIDE [Concomitant]
     Dosage: UNK, DAILY (1/D)
  6. ATENOLOL [Concomitant]
     Dosage: 25 MG, UNK
  7. SIMVASTATIN [Concomitant]
     Dosage: 40 MG, UNK
  8. DILTIAZEM HCL [Concomitant]
     Dosage: 24 MG, DAILY (1/D)
  9. ELAVIL [Concomitant]
     Dosage: 25 MG, DAILY (1/D)
     Route: 048
  10. NEXIUM [Concomitant]
     Dosage: 40 MG, DAILY (1/D)
     Route: 048
  11. XANAX [Concomitant]
     Dosage: 1 MG, EACH EVENING
     Route: 048
  12. ASPIRIN [Concomitant]
     Dosage: 81 MG, DAILY (1/D)
     Route: 048
  13. BONIVA [Concomitant]
     Dosage: 150 MG, MONTHLY (1/M)
  14. CALCIUM + VITAMIN D [Concomitant]
     Dosage: UNK, UNKNOWN
  15. MULTI-VITAMIN [Concomitant]
     Dosage: 1 D/F, DAILY (1/D)
     Route: 048

REACTIONS (6)
  - BLOOD CALCIUM INCREASED [None]
  - BLOOD MAGNESIUM INCREASED [None]
  - BRAIN NEOPLASM [None]
  - BREAST CANCER [None]
  - CANCER GENE CARRIER [None]
  - PARAESTHESIA [None]
